FAERS Safety Report 4988750-X (Version None)
Quarter: 2006Q2

REPORT INFORMATION
  Report Type: 
  Country: None (occurrence: None)
  Receive Date: 20060502
  Receipt Date: 20050324
  Transmission Date: 20061013
  Serious: Yes (Hospitalization)
  Sender: FDA-Public Use
  Company Number: US-MERCK-0503USA04784

PATIENT
  Age: 90 Year
  Sex: Female
  Weight: 57 kg

DRUGS (1)
  1. VIOXX [Suspect]
     Indication: ARTHRITIS
     Route: 048
     Dates: start: 20010201, end: 20040214

REACTIONS (39)
  - ABDOMINAL DISTENSION [None]
  - ABDOMINAL PAIN [None]
  - ACUTE PRERENAL FAILURE [None]
  - CARDIAC FAILURE CONGESTIVE [None]
  - CEREBRAL ATROPHY [None]
  - CEREBROVASCULAR ACCIDENT [None]
  - CLOSTRIDIUM DIFFICILE COLITIS [None]
  - COLITIS [None]
  - CONSTIPATION [None]
  - DEEP VEIN THROMBOSIS [None]
  - DEHYDRATION [None]
  - DEMENTIA [None]
  - ELECTROLYTE IMBALANCE [None]
  - EPISTAXIS [None]
  - FAECALOMA [None]
  - FIBROSIS [None]
  - GASTRIC DISORDER [None]
  - GASTROINTESTINAL DISORDER [None]
  - HYPERNATRAEMIA [None]
  - HYPOTENSION [None]
  - ILEUS PARALYTIC [None]
  - IMPAIRED GASTRIC EMPTYING [None]
  - LACUNAR INFARCTION [None]
  - LEUKOCYTOSIS [None]
  - LOWER RESPIRATORY TRACT INFECTION [None]
  - MENTAL STATUS CHANGES [None]
  - NEPHROLITHIASIS [None]
  - ONYCHOMYCOSIS [None]
  - OTITIS MEDIA ACUTE [None]
  - PERIPHERAL VASCULAR DISORDER [None]
  - PNEUMONIA ASPIRATION [None]
  - PYREXIA [None]
  - RESPIRATORY DISTRESS [None]
  - SKELETAL INJURY [None]
  - STAPHYLOCOCCAL INFECTION [None]
  - TOE DEFORMITY [None]
  - URINARY TRACT INFECTION [None]
  - UROSEPSIS [None]
  - VOMITING [None]
